FAERS Safety Report 6050662-0 (Version None)
Quarter: 2009Q1

REPORT INFORMATION
  Report Type: 
  Country: None (occurrence: None)
  Receive Date: 20090126
  Receipt Date: 20090119
  Transmission Date: 20090719
  Serious: Yes (Hospitalization)
  Sender: FDA-Public Use
  Company Number: ZA-ELI_LILLY_AND_COMPANY-ZA200901000685

PATIENT
  Sex: Female

DRUGS (4)
  1. HUMALOG [Suspect]
     Indication: DIABETES MELLITUS
     Dosage: 8 UL, 3/D
     Route: 058
     Dates: start: 20081101
  2. HUMULIN N [Suspect]
     Indication: DIABETES MELLITUS
     Dosage: 14 UL, EACH MORNING
     Route: 058
     Dates: start: 20081101
  3. HUMULIN N [Suspect]
     Dosage: 14 UL, OTHER
     Route: 058
     Dates: start: 20081101
  4. MULTI-VITAMINS [Concomitant]
     Indication: PREGNANCY
     Dates: start: 20090105

REACTIONS (2)
  - CYSTITIS [None]
  - DRUG EXPOSURE DURING PREGNANCY [None]
